FAERS Safety Report 10088564 (Version 3)
Quarter: 2014Q3

REPORT INFORMATION
  Report Type: Spontaneous
  Country: US (occurrence: US)
  Receive Date: 20140421
  Receipt Date: 20140723
  Transmission Date: 20150326
  Serious: No
  Sender: FDA-Public Use
  Company Number: US-BIOGENIDEC-2014BI032233

PATIENT
  Age: 47 Year
  Sex: Female

DRUGS (7)
  1. IVIG INFUSION [Concomitant]
     Indication: DECREASED IMMUNE RESPONSIVENESS
     Dates: start: 20140401
  2. BENADRYL [Concomitant]
     Active Substance: DIPHENHYDRAMINE HYDROCHLORIDE
     Indication: URTICARIA
  3. SOLU-MEDROL [Concomitant]
     Active Substance: METHYLPREDNISOLONE SODIUM SUCCINATE
     Indication: URTICARIA
  4. TECFIDERA [Suspect]
     Active Substance: DIMETHYL FUMARATE
     Indication: RELAPSING-REMITTING MULTIPLE SCLEROSIS
     Route: 048
     Dates: start: 201403, end: 20140325
  5. TECFIDERA [Suspect]
     Active Substance: DIMETHYL FUMARATE
     Indication: RELAPSING-REMITTING MULTIPLE SCLEROSIS
     Route: 048
     Dates: start: 20140330, end: 20140404
  6. TYSABRI [Concomitant]
     Active Substance: NATALIZUMAB
     Indication: MULTIPLE SCLEROSIS
     Route: 042
  7. IVIG INFUSION [Concomitant]
     Indication: DECREASED IMMUNE RESPONSIVENESS
     Route: 042

REACTIONS (12)
  - Burning sensation [Unknown]
  - Viral infection [Recovered/Resolved]
  - Prescribed underdose [Recovered/Resolved]
  - Diarrhoea [Recovered/Resolved]
  - Abdominal pain upper [Recovered/Resolved]
  - Pruritus [Recovered/Resolved]
  - Abdominal distension [Recovered/Resolved]
  - Urticaria [Recovered/Resolved]
  - Hypersensitivity [Recovered/Resolved]
  - Swollen tongue [Unknown]
  - Erythema [Recovered/Resolved]
  - Vomiting [Recovered/Resolved]

NARRATIVE: CASE EVENT DATE: 201403
